FAERS Safety Report 7170731-1 (Version None)
Quarter: 2010Q4

REPORT INFORMATION
  Report Type: 
  Country: None (occurrence: None)
  Receive Date: 20101206
  Receipt Date: 20101129
  Transmission Date: 20110411
  Serious: Yes (Hospitalization)
  Sender: FDA-Public Use
  Company Number: DSU-2010-06536

PATIENT
  Age: 75 Year
  Sex: Male
  Weight: 88.4514 kg

DRUGS (4)
  1. AZOR [Suspect]
     Indication: HYPERTENSION
     Dosage: 10/20MG (QD), PER ORAL
     Route: 048
     Dates: start: 20100701, end: 20101101
  2. TOPROL XR (METOPROLOL, SUCCINATE) (METOPROLOL SUCCINATE) [Concomitant]
  3. AMARYL [Concomitant]
  4. ZOCOR [Concomitant]

REACTIONS (3)
  - DYSPNOEA [None]
  - PRODUCT ODOUR ABNORMAL [None]
  - SWOLLEN TONGUE [None]
